FAERS Safety Report 8996662 (Version 1)
Quarter: 2013Q1

REPORT INFORMATION
  Report Type: Spontaneous
  Country: US (occurrence: US)
  Receive Date: 20130104
  Receipt Date: 20130104
  Transmission Date: 20140127
  Serious: Yes (Hospitalization, Other)
  Sender: FDA-Public Use
  Company Number: US-PFIZER INC-2013001445

PATIENT
  Age: 78 Year
  Sex: Male
  Weight: 63.49 kg

DRUGS (10)
  1. TOVIAZ [Suspect]
     Indication: POLLAKIURIA
     Dosage: 8 MG, DAILY
  2. TOVIAZ [Suspect]
     Indication: HYPERTENSION
  3. ASPIRIN [Concomitant]
     Dosage: UNK, DAILY
  4. VITAMIN C [Concomitant]
     Dosage: 500 MG, DAILY
  5. ATORVASTATIN [Concomitant]
     Dosage: 10 MG, EVERY OTHER DAY
  6. CALCIUM [Concomitant]
     Dosage: 125 MG, 2X/DAY
  7. PLAVIX [Concomitant]
     Dosage: 75 MG, DAILY
  8. METOPROLOL [Concomitant]
     Dosage: 25 MG, 2X/DAY
  9. OMEPRAZOLE [Concomitant]
     Dosage: 40 MG, DAILY
  10. IRON [Concomitant]
     Dosage: 65 MG, DAILY

REACTIONS (1)
  - Myocardial infarction [Recovered/Resolved]
